FAERS Safety Report 5407456-6 (Version None)
Quarter: 2007Q3

REPORT INFORMATION
  Report Type: 
  Country: None (occurrence: None)
  Receive Date: 20070807
  Receipt Date: 20070726
  Transmission Date: 20080115
  Serious: Yes (Other)
  Sender: FDA-Public Use
  Company Number: FR-PFIZER INC-2007046766

PATIENT
  Sex: Male
  Weight: 85 kg

DRUGS (3)
  1. CHAMPIX [Suspect]
     Indication: SMOKING CESSATION THERAPY
     Route: 048
     Dates: start: 20070316, end: 20070515
  2. ESCITALOPRAM [Interacting]
     Indication: DEPRESSION
     Route: 048
  3. DOLIPRANE [Concomitant]
     Route: 048

REACTIONS (3)
  - AMNESIA [None]
  - DRUG INTERACTION [None]
  - ECCHYMOSIS [None]
